FAERS Safety Report 10256240 (Version 1)
Quarter: 2014Q2

REPORT INFORMATION
  Report Type: Spontaneous
  Country: US (occurrence: US)
  Receive Date: 20140624
  Receipt Date: 20140624
  Transmission Date: 20141212
  Serious: Yes (Other)
  Sender: FDA-Public Use
  Company Number: US-PFIZER INC-2014171848

PATIENT
  Age: 52 Year
  Sex: Male
  Weight: 71.2 kg

DRUGS (2)
  1. NITROSTAT [Suspect]
     Indication: ANGINA PECTORIS
     Dosage: 0.4 MG, UNK
     Dates: start: 2001
  2. METOPROLOL [Concomitant]
     Dosage: 25 MG, DAILY

REACTIONS (1)
  - Myocardial infarction [Recovered/Resolved]
